FAERS Safety Report 9368724 (Version 2)
Quarter: 2013Q3

REPORT INFORMATION
  Report Type: Report from Study
  Country: CA (occurrence: CA)
  Receive Date: 20130626
  Receipt Date: 20130806
  Transmission Date: 20140515
  Serious: Yes (Death)
  Sender: FDA-Public Use
  Company Number: CA-ROCHE-1239508

PATIENT
  Sex: Female

DRUGS (5)
  1. TRASTUZUMAB EMTANSINE [Suspect]
     Indication: BREAST CANCER METASTATIC
     Dosage: FORM: 160MG/8ML
     Route: 065
     Dates: start: 20130110, end: 20130411
  2. DEXAMETHASONE [Concomitant]
  3. DIVALPROEX [Concomitant]
  4. LEVETIRACETAM [Concomitant]
  5. ZOPICLONE [Concomitant]

REACTIONS (2)
  - General physical health deterioration [Fatal]
  - Brain neoplasm malignant [Fatal]
